FAERS Safety Report 26111649 (Version 1)
Quarter: 2025Q4

REPORT INFORMATION
  Report Type: Spontaneous
  Country: PH (occurrence: PH)
  Receive Date: 20251202
  Receipt Date: 20251202
  Transmission Date: 20260117
  Serious: Yes (Other)
  Sender: AMGEN
  Company Number: PH-AMGEN-PHLSP2025233980

PATIENT
  Age: 15 Year
  Sex: Male

DRUGS (2)
  1. FILGRASTIM [Suspect]
     Active Substance: FILGRASTIM
     Indication: Product used for unknown indication
     Dosage: UNK
     Route: 065
  2. COLCHICINE [Suspect]
     Active Substance: COLCHICINE
     Indication: Product used for unknown indication
     Dosage: 0.5 MILLIGRAM (20 TABLETS)
     Route: 048

REACTIONS (13)
  - Suicide attempt [Unknown]
  - Acute kidney injury [Unknown]
  - Laboratory test abnormal [Unknown]
  - Rash [Unknown]
  - Vomiting [Unknown]
  - Abdominal pain [Unknown]
  - Diarrhoea [Unknown]
  - Asthenia [Unknown]
  - Multi-organ disorder [Unknown]
  - Hepatic enzyme increased [Unknown]
  - Blood creatinine increased [Unknown]
  - Coagulopathy [Unknown]
  - Electrolyte imbalance [Unknown]
